FAERS Safety Report 10412544 (Version 4)
Quarter: 2015Q1

REPORT INFORMATION
  Report Type: Spontaneous
  Country: FR (occurrence: FR)
  Receive Date: 20140827
  Receipt Date: 20150206
  Transmission Date: 20150720
  Serious: Yes (Hospitalization, Other)
  Sender: FDA-Public Use
  Company Number: FR-BAXTER-2014BAX051846

PATIENT
  Age: 52 Year
  Sex: Male
  Weight: 84 kg

DRUGS (7)
  1. ADVATE [Suspect]
     Active Substance: ANTIHEMOPHILIC FACTOR, HUMAN RECOMBINANT
     Indication: PAIN IN EXTREMITY
     Route: 042
     Dates: start: 20140203, end: 20140205
  2. ADVATE [Suspect]
     Active Substance: ANTIHEMOPHILIC FACTOR, HUMAN RECOMBINANT
     Indication: PAIN IN EXTREMITY
     Route: 042
     Dates: start: 20140203, end: 20140205
  3. ADVATE [Suspect]
     Active Substance: ANTIHEMOPHILIC FACTOR, HUMAN RECOMBINANT
     Indication: MENISCUS REMOVAL
     Route: 042
     Dates: start: 20140203, end: 20140205
  4. ADVATE [Suspect]
     Active Substance: ANTIHEMOPHILIC FACTOR, HUMAN RECOMBINANT
     Route: 042
     Dates: end: 20140314
  5. ADVATE [Suspect]
     Active Substance: ANTIHEMOPHILIC FACTOR, HUMAN RECOMBINANT
     Route: 042
     Dates: end: 20140314
  6. ADVATE [Suspect]
     Active Substance: ANTIHEMOPHILIC FACTOR, HUMAN RECOMBINANT
     Indication: FACTOR VIII DEFICIENCY
     Route: 042
     Dates: start: 20060327, end: 20060612
  7. ADVATE [Suspect]
     Active Substance: ANTIHEMOPHILIC FACTOR, HUMAN RECOMBINANT
     Indication: PAIN IN EXTREMITY
     Route: 042
     Dates: end: 20140314

REACTIONS (2)
  - Ecchymosis [Unknown]
  - Factor VIII inhibition [Recovered/Resolved]

NARRATIVE: CASE EVENT DATE: 20060513
